FAERS Safety Report 8305362-0 (Version None)
Quarter: 2012Q2

REPORT INFORMATION
  Report Type: 
  Country: None (occurrence: None)
  Receive Date: 20120423
  Receipt Date: 20120418
  Transmission Date: 20120825
  Serious: Yes (Life-Threatening, Hospitalization)
  Sender: FDA-Public Use
  Company Number: ES-JNJFOC-20120408242

PATIENT
  Age: 27 Year
  Sex: Female

DRUGS (6)
  1. ESCITALOPRAM [Interacting]
     Indication: PRODUCT USED FOR UNKNOWN INDICATION
     Route: 048
  2. CLONAZEPAM [Interacting]
     Indication: PRODUCT USED FOR UNKNOWN INDICATION
     Route: 048
  3. AKINETON [Interacting]
     Indication: PRODUCT USED FOR UNKNOWN INDICATION
     Route: 048
  4. INVEGA [Suspect]
     Indication: PRODUCT USED FOR UNKNOWN INDICATION
     Route: 048
  5. ZYPREXA [Interacting]
     Indication: PRODUCT USED FOR UNKNOWN INDICATION
     Route: 048
  6. SEROQUEL [Interacting]
     Indication: PRODUCT USED FOR UNKNOWN INDICATION
     Route: 048

REACTIONS (4)
  - DEPRESSED LEVEL OF CONSCIOUSNESS [None]
  - DRUG INTERACTION [None]
  - INTENTIONAL OVERDOSE [None]
  - ASPIRATION [None]
